FAERS Safety Report 5001057-X (Version None)
Quarter: 2006Q2

REPORT INFORMATION
  Report Type: 
  Country: None (occurrence: None)
  Receive Date: 20060512
  Receipt Date: 20060508
  Transmission Date: 20061013
  Serious: Yes (Hospitalization)
  Sender: FDA-Public Use
  Company Number: 446516

PATIENT
  Age: 68 Year
  Sex: Female

DRUGS (6)
  1. ARTIST [Suspect]
     Indication: CARDIAC FAILURE
     Dosage: 5MG PER DAY
     Route: 048
     Dates: start: 20051123
  2. PANALDINE [Suspect]
     Indication: THROMBOSIS PROPHYLAXIS
     Dosage: 200MG PER DAY
     Route: 048
     Dates: start: 20051012, end: 20060420
  3. RENIVEZE [Concomitant]
     Indication: DRUG USE FOR UNKNOWN INDICATION
     Route: 065
  4. UNKNOWN ANTI-DIABETIC MEDICATION [Concomitant]
     Indication: DIABETES MELLITUS
     Route: 065
  5. PLETAL [Concomitant]
     Indication: DRUG USE FOR UNKNOWN INDICATION
     Route: 065
  6. LASIX [Concomitant]
     Indication: DRUG USE FOR UNKNOWN INDICATION
     Route: 065

REACTIONS (2)
  - HEPATIC ENZYME INCREASED [None]
  - LIVER DISORDER [None]
